FAERS Safety Report 13597748 (Version 1)
Quarter: 2017Q2

REPORT INFORMATION
  Report Type: Spontaneous
  Country: US (occurrence: US)
  Receive Date: 20170531
  Receipt Date: 20170531
  Transmission Date: 20170830
  Serious: No
  Sender: FDA-Public Use
  Company Number: None

PATIENT
  Age: 57 Year
  Sex: Female
  Weight: 57.61 kg

DRUGS (1)
  1. VIVELLE 0.075 (USED GENERIC) [Suspect]
     Active Substance: ESTRADIOL
     Route: 061
     Dates: start: 20170110

REACTIONS (2)
  - Night sweats [None]
  - Hot flush [None]

NARRATIVE: CASE EVENT DATE: 20170220
